FAERS Safety Report 24936385 (Version 3)
Quarter: 2025Q1

REPORT INFORMATION
  Report Type: Spontaneous
  Country: US (occurrence: US)
  Receive Date: 20250206
  Receipt Date: 20250320
  Transmission Date: 20250409
  Serious: Yes (Other)
  Sender: BRISTOL-MYERS SQUIBB COMPANY
  Company Number: US-BRISTOL-MYERS SQUIBB COMPANY-2025-016211

PATIENT
  Age: 55 Year
  Sex: Female

DRUGS (1)
  1. POMALYST [Suspect]
     Active Substance: POMALIDOMIDE
     Indication: Plasma cell myeloma
     Dosage: 7 DAYS ON 14 DAYS OFF/QD FOR 7 DAYS THEN 14 DAYS OFF
     Route: 048

REACTIONS (3)
  - Rheumatoid arthritis [Unknown]
  - Dry skin [Unknown]
  - Dry mouth [Unknown]
